FAERS Safety Report 9660945 (Version 1)
Quarter: 2013Q4

REPORT INFORMATION
  Report Type: Spontaneous
  Country: US (occurrence: US)
  Receive Date: 20131031
  Receipt Date: 20131031
  Transmission Date: 20140711
  Serious: Yes (Death)
  Sender: FDA-Public Use
  Company Number: US-PFIZER INC-2013311157

PATIENT
  Age: 54 Year
  Sex: Male

DRUGS (1)
  1. CAMPTOSAR [Suspect]
     Indication: PANCREATIC DISORDER
     Dosage: 338 MG, UNK
     Dates: start: 20130917

REACTIONS (1)
  - Death [Fatal]
